FAERS Safety Report 6209605-9 (Version None)
Quarter: 2009Q2

REPORT INFORMATION
  Report Type: 
  Country: None (occurrence: None)
  Receive Date: 20090527
  Receipt Date: 20090514
  Transmission Date: 20091009
  Serious: Yes (Hospitalization)
  Sender: FDA-Public Use
  Company Number: 20096816

PATIENT
  Sex: 0

DRUGS (1)
  1. LIORESAL [Suspect]
     Indication: MUSCLE SPASTICITY
     Dosage: 990 MCG, DAILY, INTRATHECAL
     Route: 037

REACTIONS (3)
  - HAEMATOMA [None]
  - LOCALISED OEDEMA [None]
  - NEEDLE ISSUE [None]
